FAERS Safety Report 5913073-1 (Version None)
Quarter: 2008Q4

REPORT INFORMATION
  Report Type: 
  Country: None (occurrence: None)
  Receive Date: 20081008
  Receipt Date: 20081008
  Transmission Date: 20090506
  Serious: No
  Sender: FDA-Public Use
  Company Number: None

PATIENT
  Age: 66 Year
  Sex: Male
  Weight: 108.8633 kg

DRUGS (1)
  1. FLOMAX [Suspect]
     Dosage: 1.4 MG NIGHTLY MONTH
     Dates: start: 20080501, end: 20080701

REACTIONS (3)
  - ABDOMINAL PAIN LOWER [None]
  - MICTURITION URGENCY [None]
  - SEMEN ANALYSIS ABNORMAL [None]
